FAERS Safety Report 5251577-8 (Version None)
Quarter: 2007Q1

REPORT INFORMATION
  Report Type: 
  Country: None (occurrence: None)
  Receive Date: 20061201
  Receipt Date: 20060731
  Transmission Date: 20070707
  Serious: No
  Sender: FDA-Public Use
  Company Number: 2006PV018563

PATIENT
  Age: 45 Year
  Sex: Female
  Weight: 89.8122 kg

DRUGS (1)
  1. BYETTA [Suspect]
     Indication: BLOOD TRIGLYCERIDES INCREASED
     Dosage: 5 MCG BID SC
     Route: 058
     Dates: start: 20060722

REACTIONS (3)
  - BURNING SENSATION [None]
  - PAIN IN EXTREMITY [None]
  - URTICARIA LOCALISED [None]
